FAERS Safety Report 6989229-6 (Version None)
Quarter: 2010Q3

REPORT INFORMATION
  Report Type: 
  Country: None (occurrence: None)
  Receive Date: 20100916
  Receipt Date: 20091026
  Transmission Date: 20110219
  Serious: Yes (Death, Hospitalization, Other)
  Sender: FDA-Public Use
  Company Number: BO-PFIZER INC-2009287340

PATIENT
  Age: 91 Year
  Sex: Female

DRUGS (1)
  1. LYRICA [Suspect]
     Dosage: 75 MG, 1X/DAY
     Route: 048
     Dates: start: 20090604

REACTIONS (3)
  - CARDIO-RESPIRATORY ARREST [None]
  - DIABETIC COMA [None]
  - PANCREATITIS ACUTE [None]
